FAERS Safety Report 20970727 (Version 1)
Quarter: 2022Q2

REPORT INFORMATION
  Report Type: Spontaneous
  Country: US (occurrence: US)
  Receive Date: 20220616
  Receipt Date: 20220616
  Transmission Date: 20220720
  Serious: No
  Sender: FDA-Public Use
  Company Number: US-SANOFI-01131271

PATIENT
  Age: 41 Year

DRUGS (1)
  1. DUPIXENT [Suspect]
     Active Substance: DUPILUMAB
     Indication: Chronic rhinosinusitis with nasal polyps
     Dosage: 300 MG
     Dates: start: 20220526

REACTIONS (3)
  - Urinary tract infection [Unknown]
  - Eye discharge [Unknown]
  - Dry eye [Unknown]

NARRATIVE: CASE EVENT DATE: 20220529
